FAERS Safety Report 9181266 (Version 2)
Quarter: 2013Q1

REPORT INFORMATION
  Report Type: Spontaneous
  Country: US (occurrence: US)
  Receive Date: 20130322
  Receipt Date: 20130322
  Transmission Date: 20140127
  Serious: No
  Sender: FDA-Public Use
  Company Number: US-MYLANLABS-2012S1025638

PATIENT
  Age: 18 Year
  Sex: Male

DRUGS (2)
  1. EMSAM [Suspect]
     Indication: ATTENTION DEFICIT/HYPERACTIVITY DISORDER
     Route: 062
     Dates: start: 20121105
  2. EMSAM [Suspect]
     Indication: OFF LABEL USE
     Route: 062
     Dates: start: 20121105

REACTIONS (3)
  - Application site rash [Not Recovered/Not Resolved]
  - Application site erythema [None]
  - Off label use [None]
